FAERS Safety Report 14378739 (Version 6)
Quarter: 2018Q2

REPORT INFORMATION
  Report Type: Report from Study
  Country: US (occurrence: US)
  Receive Date: 20180112
  Receipt Date: 20180629
  Transmission Date: 20180711
  Serious: No
  Sender: FDA-Public Use
  Company Number: PHEH2018US001027

PATIENT
  Age: 49 Year
  Sex: Female

DRUGS (14)
  1. CABERGOLINE. [Concomitant]
     Active Substance: CABERGOLINE
     Indication: PITUITARY TUMOUR
     Dosage: 0.5 MG, UNK (M-E 1/2 TABLET)
     Route: 048
  2. BUPROPION HCL [Concomitant]
     Active Substance: BUPROPION HYDROCHLORIDE
     Indication: DEPRESSION
     Dosage: 300 MG, QD
     Route: 048
  3. NALTREXONE [Concomitant]
     Active Substance: NALTREXONE
     Indication: DIABETES MELLITUS
     Dosage: 50 MG, QD
     Route: 048
  4. VITAMIN D3 [Concomitant]
     Active Substance: CHOLECALCIFEROL
     Indication: VITAMIN SUPPLEMENTATION
     Dosage: 2000 IU, QD
     Route: 048
  5. LEVOTHYROXINE. [Concomitant]
     Active Substance: LEVOTHYROXINE
     Indication: THYROID DISORDER
     Dosage: 5 UG, UNK
     Route: 048
  6. SYNTHROID [Concomitant]
     Active Substance: LEVOTHYROXINE SODIUM
     Indication: THYROID DISORDER
     Dosage: 125 UG, QD
     Route: 048
  7. MAGNESIUM [Concomitant]
     Active Substance: MAGNESIUM
     Indication: MINERAL SUPPLEMENTATION
     Dosage: 400 MG, QD
     Route: 048
  8. IRON [Concomitant]
     Active Substance: IRON
     Indication: MINERAL SUPPLEMENTATION
     Dosage: 325 MG, QD
     Route: 048
  9. METFORMIN [Concomitant]
     Active Substance: METFORMIN HYDROCHLORIDE
     Indication: DIABETES MELLITUS
     Dosage: 10 MG, BID
     Route: 048
  10. VITAMIN B12 [Concomitant]
     Active Substance: CYANOCOBALAMIN
     Indication: VITAMIN SUPPLEMENTATION
     Dosage: 2500 UG, QD
     Route: 048
  11. SIGNIFOR LAR [Suspect]
     Active Substance: PASIREOTIDE
     Indication: PRODUCT USED FOR UNKNOWN INDICATION
     Dosage: 60 MG, UNK
     Route: 065
  12. LOSARTAN POTASSIUM. [Concomitant]
     Active Substance: LOSARTAN POTASSIUM
     Indication: BLOOD PRESSURE ABNORMAL
     Dosage: 5 MG, QD
     Route: 048
  13. AMILORIDE HCL [Concomitant]
     Active Substance: AMILORIDE HYDROCHLORIDE
     Indication: PRODUCT USED FOR UNKNOWN INDICATION
     Dosage: 5 MG, QD
     Route: 048
  14. KORLYM [Concomitant]
     Active Substance: MIFEPRISTONE
     Indication: CUSHING^S SYNDROME
     Dosage: 300 MG, QD
     Route: 048

REACTIONS (10)
  - Parosmia [Unknown]
  - Blood oestrogen increased [Unknown]
  - Cyst [Recovered/Resolved]
  - Joint stiffness [Unknown]
  - Uterine disorder [Unknown]
  - Bone density increased [Unknown]
  - Pain [Unknown]
  - Arthralgia [Unknown]
  - Nasopharyngitis [Unknown]
  - Asthenia [Unknown]

NARRATIVE: CASE EVENT DATE: 201712
